FAERS Safety Report 8247089-X (Version None)
Quarter: 2012Q1

REPORT INFORMATION
  Report Type: 
  Country: None (occurrence: None)
  Receive Date: 20120330
  Receipt Date: 20120316
  Transmission Date: 20120608
  Serious: Yes (Death, Hospitalization, Other)
  Sender: FDA-Public Use
  Company Number: FI-ROCHE-1050081

PATIENT
  Age: 52 Year
  Sex: Male

DRUGS (3)
  1. PREDNISOLONE [Suspect]
     Indication: JUVENILE ARTHRITIS
     Route: 048
  2. ACTEMRA [Suspect]
     Indication: JUVENILE ARTHRITIS
     Route: 042
     Dates: end: 20120301
  3. METHOTREXATE [Concomitant]
     Indication: JUVENILE ARTHRITIS
     Route: 048

REACTIONS (6)
  - OROPHARYNGEAL PAIN [None]
  - FLANK PAIN [None]
  - VOMITING [None]
  - HYPOTONIA [None]
  - SEPSIS [None]
  - DEATH [None]
